FAERS Safety Report 7183599-4 (Version None)
Quarter: 2010Q4

REPORT INFORMATION
  Report Type: 
  Country: None (occurrence: None)
  Receive Date: 20101220
  Receipt Date: 20101220
  Transmission Date: 20110411
  Serious: Yes (Death)
  Sender: FDA-Public Use
  Company Number: None

PATIENT
  Sex: Female
  Weight: 52.6173 kg

DRUGS (2)
  1. ERLOTINIB [Suspect]
     Indication: PANCREATIC CARCINOMA METASTATIC
     Dosage: 150MG PO INTERMITTENT
     Route: 048
     Dates: start: 20101008, end: 20101130
  2. GEMCITABINE [Suspect]
     Indication: PANCREATIC CARCINOMA METASTATIC
     Dosage: 500MG IV WEEKLY
     Route: 042
     Dates: start: 20101007, end: 20101110

REACTIONS (2)
  - MALIGNANT NEOPLASM PROGRESSION [None]
  - PANCREATIC CARCINOMA METASTATIC [None]
